FAERS Safety Report 24194379 (Version 1)
Quarter: 2024Q3

REPORT INFORMATION
  Report Type: Spontaneous
  Country: US (occurrence: US)
  Receive Date: 20240809
  Receipt Date: 20240809
  Transmission Date: 20241017
  Serious: No
  Sender: BAUSCH AND LOMB
  Company Number: US-BAUSCHBL-2024BNL030999

PATIENT
  Age: 77 Year
  Sex: Female

DRUGS (1)
  1. XIIDRA [Suspect]
     Active Substance: LIFITEGRAST
     Indication: Product used for unknown indication
     Route: 065
     Dates: start: 20240501

REACTIONS (3)
  - Foreign body in eye [Unknown]
  - Eye pain [Unknown]
  - Eye irritation [Unknown]
